FAERS Safety Report 4784749-7 (Version None)
Quarter: 2005Q3

REPORT INFORMATION
  Report Type: 
  Country: None (occurrence: None)
  Receive Date: 20050930
  Receipt Date: 20050920
  Transmission Date: 20060218
  Serious: Yes (Other)
  Sender: FDA-Public Use
  Company Number: US-ROCHE-418455

PATIENT
  Sex: Female

DRUGS (2)
  1. ACCUTANE [Suspect]
     Indication: DRUG USE FOR UNKNOWN INDICATION
     Dosage: SECOND COURSE. TAKEN AT NIGHT.
     Route: 048
  2. ACCUTANE [Suspect]
     Dosage: FIRST COURSE. TAKEN AT NIGHT.
     Route: 048
     Dates: start: 20040915

REACTIONS (2)
  - BULIMIA NERVOSA [None]
  - MOOD ALTERED [None]
